FAERS Safety Report 10785178 (Version 2)
Quarter: 2015Q1

REPORT INFORMATION
  Report Type: Spontaneous
  Country: IT (occurrence: IT)
  Receive Date: 20150211
  Receipt Date: 20150212
  Transmission Date: 20150721
  Serious: Yes (Other)
  Sender: FDA-Public Use
  Company Number: IT-TEVA-538712ISR

PATIENT
  Age: 52 Year
  Sex: Male

DRUGS (3)
  1. HEDERIX PLAN - 0,60 G/30 ML + 4,5 G/30 ML GOCCE ORALI, SOLUZIONE [Concomitant]
     Indication: PRODUCT USED FOR UNKNOWN INDICATION
     Route: 048
  2. BENTELAN - 1 MG COMPRESSE EFFERVESCENTI [Concomitant]
     Indication: PRODUCT USED FOR UNKNOWN INDICATION
     Dosage: 1 DF, EFFERVESCENT TABLET
     Route: 048
  3. LEVOFLOXACINA TEVA - 500 MG COMPRESSE RIVESTITE CON FILM [Suspect]
     Active Substance: LEVOFLOXACIN
     Indication: BRONCHITIS
     Dosage: 1 DOSAGE FORMS DAILY;
     Route: 048
     Dates: start: 20150127, end: 20150127

REACTIONS (4)
  - Dyspnoea [Recovered/Resolved]
  - Laryngeal oedema [Recovered/Resolved]
  - Cough [Recovered/Resolved]
  - Erythema [Recovered/Resolved]

NARRATIVE: CASE EVENT DATE: 20150127
